FAERS Safety Report 5836017-X (Version None)
Quarter: 2008Q3

REPORT INFORMATION
  Report Type: 
  Country: None (occurrence: None)
  Receive Date: 20080805
  Receipt Date: 20080718
  Transmission Date: 20090109
  Serious: Yes (Death, Hospitalization)
  Sender: FDA-Public Use
  Company Number: GXKR2008JP04498

PATIENT
  Age: 75 Year
  Sex: Female

DRUGS (4)
  1. CARBOPLATIN [Suspect]
     Indication: NON-SMALL CELL LUNG CANCER
     Dosage: 320 MG/DAY, INFUSION; 300 MG/DAY, INFUSION
     Dates: start: 20071004
  2. CARBOPLATIN [Suspect]
     Indication: NON-SMALL CELL LUNG CANCER
     Dosage: 320 MG/DAY, INFUSION; 300 MG/DAY, INFUSION
     Dates: start: 20071211
  3. NAVELBINE [Suspect]
     Indication: NON-SMALL CELL LUNG CANCER
     Dosage: 20 MG/DAY,
     Dates: start: 20071004, end: 20071011
  4. TAXOL [Suspect]
     Indication: NON-SMALL CELL LUNG CANCER
     Dosage: 180 MG/DAY,
     Dates: start: 20071211

REACTIONS (7)
  - BLOOD ELECTROLYTES ABNORMAL [None]
  - DIARRHOEA [None]
  - LEUKOPENIA [None]
  - NEUTROPENIA [None]
  - OBSTRUCTIVE AIRWAYS DISORDER [None]
  - RENAL IMPAIRMENT [None]
  - THROMBOCYTOPENIA [None]
